FAERS Safety Report 18841167 (Version 1)
Quarter: 2021Q1

REPORT INFORMATION
  Report Type: Spontaneous
  Country: US (occurrence: US)
  Receive Date: 20210203
  Receipt Date: 20210203
  Transmission Date: 20210419
  Serious: Yes (Other)
  Sender: FDA-Public Use
  Company Number: US-PIERREL PHARMA S.P.A.-2021PIR00001

PATIENT
  Sex: Female
  Weight: 97.51 kg

DRUGS (9)
  1. ORABLOC [Suspect]
     Active Substance: ARTICAINE HYDROCHLORIDE\EPINEPHRINE BITARTRATE
     Indication: TOOTH FRACTURE
     Dosage: 3.6 ML, ONCE
     Route: 004
     Dates: start: 20200922, end: 20200922
  2. DULOXETINE. [Concomitant]
     Active Substance: DULOXETINE
     Dosage: ^HIGHEST DOSE^
  3. ZOLPIDEM [Concomitant]
     Active Substance: ZOLPIDEM TARTRATE
  4. CONCERTA [Concomitant]
     Active Substance: METHYLPHENIDATE HYDROCHLORIDE
     Dosage: 27 MG
  5. LISINOPRIL. [Concomitant]
     Active Substance: LISINOPRIL
     Dosage: 5 MG
  6. UNSPECIFIED ANXIETY MEDICATION [Concomitant]
     Active Substance: UNSPECIFIED INGREDIENT
  7. ELIQUIS [Concomitant]
     Active Substance: APIXABAN
     Dosage: 5 MG
  8. OMEPRAZOLE. [Concomitant]
     Active Substance: OMEPRAZOLE
  9. TRAZODONE [Concomitant]
     Active Substance: TRAZODONE HYDROCHLORIDE
     Dosage: 200 MG

REACTIONS (18)
  - Reaction to preservatives [Not Recovered/Not Resolved]
  - Memory impairment [Not Recovered/Not Resolved]
  - Gingival disorder [Unknown]
  - Pain [Not Recovered/Not Resolved]
  - Suicidal ideation [Not Recovered/Not Resolved]
  - Renal disorder [Not Recovered/Not Resolved]
  - Anxiety [Not Recovered/Not Resolved]
  - Nervous system disorder [Not Recovered/Not Resolved]
  - Speech disorder [Not Recovered/Not Resolved]
  - Confusional state [Not Recovered/Not Resolved]
  - Dizziness [Not Recovered/Not Resolved]
  - Dyspnoea [Recovering/Resolving]
  - Multi-organ disorder [Not Recovered/Not Resolved]
  - Cerebral disorder [Not Recovered/Not Resolved]
  - Liver disorder [Not Recovered/Not Resolved]
  - Oral disorder [Unknown]
  - Impaired healing [Unknown]
  - Dysphonia [Unknown]

NARRATIVE: CASE EVENT DATE: 2020
